FAERS Safety Report 8366485-3 (Version None)
Quarter: 2012Q2

REPORT INFORMATION
  Report Type: 
  Country: None (occurrence: None)
  Receive Date: 20120517
  Receipt Date: 20120508
  Transmission Date: 20120825
  Serious: Yes (Other)
  Sender: FDA-Public Use
  Company Number: CA-ASTRAZENECA-2011SE40577

PATIENT
  Age: 81 Year
  Sex: Female

DRUGS (9)
  1. VITAMIN D [Concomitant]
  2. SEROQUEL [Suspect]
     Indication: INSOMNIA
     Route: 048
     Dates: start: 20090101
  3. DIDROCAL [Concomitant]
  4. ATENOLOL [Concomitant]
     Indication: ARRHYTHMIA
     Route: 048
     Dates: start: 20000101
  5. OMEPRAZOLE (PRISOLEC) [Suspect]
     Route: 048
     Dates: end: 20101201
  6. NEXIUM [Suspect]
     Indication: GASTROOESOPHAGEAL REFLUX DISEASE
     Route: 048
     Dates: start: 20120201
  7. PRAVASTATIN [Concomitant]
     Indication: HYPERCHOLESTEROLAEMIA
     Route: 048
  8. ATENOLOL [Concomitant]
     Indication: HYPERTENSION
     Route: 048
     Dates: start: 20000101
  9. ALENDRONATE SODIUM [Concomitant]
     Indication: OSTEOPOROSIS
     Route: 048
     Dates: start: 20110101, end: 20120201

REACTIONS (12)
  - HEART RATE INCREASED [None]
  - BONE DENSITY DECREASED [None]
  - SLEEP DISORDER DUE TO A GENERAL MEDICAL CONDITION [None]
  - INTENTIONAL DRUG MISUSE [None]
  - OSTEOPOROSIS [None]
  - MULTIPLE ALLERGIES [None]
  - DYSURIA [None]
  - DISTURBANCE IN ATTENTION [None]
  - GASTROOESOPHAGEAL REFLUX DISEASE [None]
  - ASTHENIA [None]
  - GASTROINTESTINAL INFLAMMATION [None]
  - MEMORY IMPAIRMENT [None]
